FAERS Safety Report 17768470 (Version 3)
Quarter: 2020Q2

REPORT INFORMATION
  Report Type: Spontaneous
  Country: CA (occurrence: CA)
  Receive Date: 20200512
  Receipt Date: 20200624
  Transmission Date: 20200714
  Serious: Yes (Hospitalization, Other)
  Sender: FDA-Public Use
  Company Number: CA-CELLTRION INC.-2019CA023288

PATIENT

DRUGS (5)
  1. INFLECTRA [Suspect]
     Active Substance: INFLIXIMAB-DYYB
     Dosage: 200 MG EVERY 8 WEEKS
     Route: 042
     Dates: start: 20191125
  2. METHOTREXATE. [Concomitant]
     Active Substance: METHOTREXATE
     Dosage: 1 INJECTION Q WEEKLY
  3. INFLECTRA [Suspect]
     Active Substance: INFLIXIMAB-DYYB
     Dosage: 200 MG, EVERY 8 WEEKS
     Route: 042
     Dates: start: 20200316
  4. INFLECTRA [Suspect]
     Active Substance: INFLIXIMAB-DYYB
     Dosage: 200 MG EVERY 8 WEEKS
     Route: 042
     Dates: start: 20190930
  5. INFLECTRA [Suspect]
     Active Substance: INFLIXIMAB-DYYB
     Indication: RHEUMATOID ARTHRITIS
     Dosage: 200 MG EVERY 8 WEEKS
     Route: 042
     Dates: start: 20190806

REACTIONS (6)
  - Off label use [Unknown]
  - Blood pressure fluctuation [Unknown]
  - Lymphoma [Unknown]
  - Off label use [Unknown]
  - Intentional product use issue [Unknown]
  - Hypernatraemia [Unknown]

NARRATIVE: CASE EVENT DATE: 20191125
